FAERS Safety Report 5580244-6 (Version None)
Quarter: 2007Q4

REPORT INFORMATION
  Report Type: 
  Country: None (occurrence: None)
  Receive Date: 20071231
  Receipt Date: 20071231
  Transmission Date: 20080405
  Serious: Yes (Death)
  Sender: FDA-Public Use
  Company Number: None

PATIENT
  Age: 84 Year
  Sex: Female
  Weight: 56 kg

DRUGS (7)
  1. LOVENOX [Suspect]
     Indication: ATRIAL FIBRILLATION
     Dosage: 55 MG SC Q12H
     Route: 058
     Dates: start: 20070427, end: 20070430
  2. WARFARIN SODIUM [Suspect]
     Indication: ATRIAL FIBRILLATION
     Dosage: 2 MG DAILY
     Dates: start: 20070429, end: 20070430
  3. TOPROL-XL [Concomitant]
  4. CARDIZEM CD [Concomitant]
  5. DIGOXIN [Concomitant]
  6. PREVACID [Concomitant]
  7. CEFTRIAXONE [Concomitant]

REACTIONS (2)
  - ENCEPHALOPATHY [None]
  - HAEMORRHAGE INTRACRANIAL [None]
